FAERS Safety Report 12347023 (Version 1)
Quarter: 2016Q2

REPORT INFORMATION
  Report Type: Report from Study
  Country: VE (occurrence: VE)
  Receive Date: 20160509
  Receipt Date: 20160509
  Transmission Date: 20160815
  Serious: Yes (Death)
  Sender: FDA-Public Use
  Company Number: VE-ABBVIE-16K-178-1621462-00

PATIENT
  Age: 22 Year
  Sex: Male
  Weight: 55 kg

DRUGS (1)
  1. HUMIRA [Suspect]
     Active Substance: ADALIMUMAB
     Indication: CROHN^S DISEASE
     Route: 058
     Dates: start: 2014, end: 201511

REACTIONS (4)
  - Death [Fatal]
  - Malaise [Unknown]
  - Discomfort [Unknown]
  - Flavivirus infection [Unknown]

NARRATIVE: CASE EVENT DATE: 2015
